FAERS Safety Report 10028343 (Version 2)
Quarter: 2014Q2

REPORT INFORMATION
  Report Type: Spontaneous
  Country: US (occurrence: US)
  Receive Date: 20140321
  Receipt Date: 20140625
  Transmission Date: 20141212
  Serious: Yes (Other)
  Sender: FDA-Public Use
  Company Number: PHEH2014US005523

PATIENT
  Age: 72 Year
  Sex: Male

DRUGS (5)
  1. DIOVAN [Suspect]
     Dosage: UNK UKN, UNK
     Dates: end: 201402
  2. NAMENDA [Suspect]
     Indication: DEMENTIA
     Dosage: 10 MG, BID
  3. ARICEPT [Suspect]
     Indication: DEMENTIA
     Dosage: UNK UKN, UNK
     Dates: end: 20140128
  4. SINEMET [Concomitant]
     Indication: PARKINSON^S DISEASE
     Dosage: UNK UKN, UNK
  5. SEROQUEL [Concomitant]
     Indication: DELIRIUM
     Dosage: UNK UKN, UNK

REACTIONS (3)
  - Heart rate decreased [Recovered/Resolved]
  - Feeling jittery [Recovered/Resolved]
  - Restlessness [Recovered/Resolved]
